FAERS Safety Report 4459410-9 (Version None)
Quarter: 2004Q3

REPORT INFORMATION
  Report Type: 
  Country: None (occurrence: None)
  Receive Date: 20040927
  Receipt Date: 20040923
  Transmission Date: 20050211
  Serious: Yes (Life-Threatening)
  Sender: FDA-Public Use
  Company Number: 12702049

PATIENT
  Age: 46 Year
  Sex: Male

DRUGS (5)
  1. COMBIVIR [Suspect]
     Indication: HIV INFECTION
     Dosage: 1TAB TWICE PER DAY
     Route: 048
     Dates: start: 20030612
  2. EFAVIRENZ [Suspect]
     Indication: HIV INFECTION
     Dosage: 600MG PER DAY
     Route: 048
     Dates: start: 20030612
  3. BACTRIM [Concomitant]
  4. ELAVIL [Concomitant]
  5. DOCUSATE SODIUM [Concomitant]
     Indication: CONSTIPATION
     Dates: start: 20040515

REACTIONS (3)
  - ABDOMINAL PAIN [None]
  - CONSTIPATION [None]
  - LIPASE INCREASED [None]
